FAERS Safety Report 9217629 (Version 1)
Quarter: 2013Q2

REPORT INFORMATION
  Report Type: Spontaneous
  Country: JP (occurrence: JP)
  Receive Date: 20130408
  Receipt Date: 20130408
  Transmission Date: 20140414
  Serious: Yes (Other)
  Sender: FDA-Public Use
  Company Number: JP-ROCHE-1210316

PATIENT
  Age: 4 Year
  Sex: Female
  Weight: 13 kg

DRUGS (1)
  1. PEGASYS [Suspect]
     Indication: CHRONIC HEPATITIS C
     Route: 058
     Dates: start: 20051116, end: 20061009

REACTIONS (2)
  - Failure to thrive [Recovering/Resolving]
  - Pyrexia [Recovering/Resolving]
